FAERS Safety Report 5218442-3 (Version None)
Quarter: 2007Q1

REPORT INFORMATION
  Report Type: 
  Country: None (occurrence: None)
  Receive Date: 20061201
  Receipt Date: 20060729
  Transmission Date: 20070707
  Serious: Yes (Other)
  Sender: FDA-Public Use
  Company Number: SPV1-2006-00306

PATIENT
  Age: 9 Year
  Sex: Male

DRUGS (1)
  1. ADDERALL 15 [Suspect]
     Dosage: 5 MG, 1X/DAY: QD

REACTIONS (2)
  - MOOD SWINGS [None]
  - PSYCHOTIC DISORDER [None]
